FAERS Safety Report 6043294-1 (Version None)
Quarter: 2009Q1

REPORT INFORMATION
  Report Type: 
  Country: None (occurrence: None)
  Receive Date: 20090119
  Receipt Date: 20090109
  Transmission Date: 20090719
  Serious: Yes (Hospitalization)
  Sender: FDA-Public Use
  Company Number: DE-RANBAXY-2009RR-20447

PATIENT
  Age: 86 Year
  Sex: Female

DRUGS (9)
  1. ENALAPRIL MALEATE [Suspect]
     Indication: HYPERTENSION
     Dosage: 5 MG, BID
     Route: 048
  2. CORDAREX [Suspect]
     Indication: SUPRAVENTRICULAR TACHYCARDIA
     Dosage: 100 MG, BID
     Route: 048
  3. SPIRONOLACTONE [Suspect]
     Indication: OEDEMA
     Dosage: 50 MG, QD
     Route: 048
     Dates: end: 20080805
  4. TOREM/GFR [Suspect]
     Indication: CARDIAC FAILURE
     Dosage: 5 MG, QD
     Route: 048
     Dates: end: 20080805
  5. ASPIRIN [Concomitant]
     Indication: PROPHYLAXIS
     Dosage: 100 MG, QD
     Route: 048
  6. CARVEDILOL [Concomitant]
     Indication: HYPERTENSION
     Dosage: 6.25 MG, BID
     Route: 048
  7. LEVOTHYROXINE SODIUM [Concomitant]
     Indication: HYPOTHYROIDISM
     Dosage: 25 UG, QD
     Route: 048
     Dates: start: 20080801
  8. PENTALONG [Concomitant]
     Indication: ANGINA PECTORIS
     Dosage: 80 MG, BID
     Route: 048
  9. PLAVIX [Concomitant]
     Indication: PROPHYLAXIS
     Dosage: 75 MG, QD
     Route: 050

REACTIONS (4)
  - GENERAL PHYSICAL CONDITION ABNORMAL [None]
  - HYPERKALAEMIA [None]
  - HYPONATRAEMIA [None]
  - HYPOTHYROIDISM [None]
